FAERS Safety Report 7960866-5 (Version None)
Quarter: 2011Q4

REPORT INFORMATION
  Report Type: 
  Country: None (occurrence: None)
  Receive Date: 20111115
  Receipt Date: 20110210
  Transmission Date: 20120403
  Serious: Yes (Other)
  Sender: FDA-Public Use
  Company Number: 112743

PATIENT
  Age: 49 Year
  Sex: Female

DRUGS (1)
  1. CARBOPLATIN [Suspect]
     Indication: BREAST CANCER
     Dosage: UNKNOWN/IV
     Route: 042
     Dates: start: 20101216

REACTIONS (4)
  - BLISTER [None]
  - MUCOSAL INFLAMMATION [None]
  - STOMATITIS [None]
  - RASH [None]
